FAERS Safety Report 6039647-8 (Version None)
Quarter: 2009Q1

REPORT INFORMATION
  Report Type: 
  Country: None (occurrence: None)
  Receive Date: 20090116
  Receipt Date: 20090107
  Transmission Date: 20090719
  Serious: Yes (Other)
  Sender: FDA-Public Use
  Company Number: JP-ASTRAZENECA-2009AP00476

PATIENT
  Age: 1 Year
  Sex: Male

DRUGS (12)
  1. MEROPEN [Suspect]
     Indication: PNEUMONIA
     Route: 041
     Dates: start: 20080811, end: 20080901
  2. TARGOCID [Suspect]
     Indication: PNEUMONIA
     Route: 041
     Dates: start: 20080811, end: 20080901
  3. KLARICID DRY SYRUP [Concomitant]
  4. MUCOSOLVAN DS 3% [Concomitant]
  5. ONON [Concomitant]
  6. THEO-DUR [Concomitant]
  7. PREDNISOLONE [Concomitant]
  8. LASIX [Concomitant]
  9. SPIRONOLACTONE [Concomitant]
  10. GLUCONSAN K [Concomitant]
     Route: 048
  11. INCREMIN [Concomitant]
     Route: 048
  12. DORNER [Concomitant]
     Route: 048

REACTIONS (1)
  - NEUTROPHIL COUNT DECREASED [None]
